FAERS Safety Report 5231271-X (Version None)
Quarter: 2007Q1

REPORT INFORMATION
  Report Type: 
  Country: None (occurrence: None)
  Receive Date: 20070205
  Receipt Date: 20070205
  Transmission Date: 20070707
  Serious: Yes (Hospitalization)
  Sender: FDA-Public Use
  Company Number: None

PATIENT
  Age: 56 Year
  Sex: Female
  Weight: 40.8237 kg

DRUGS (2)
  1. CETUXIMAB [Suspect]
     Indication: NEOPLASM MALIGNANT
     Dosage: 337.5MG WEEKLY, IV
     Route: 042
     Dates: start: 20060912, end: 20070122
  2. PACLITAXEL [Suspect]
     Indication: NEOPLASM MALIGNANT
     Dosage: 62.8 MG WEEKLY, IV
     Route: 042
     Dates: start: 20060515, end: 20060626

REACTIONS (16)
  - BODY TEMPERATURE INCREASED [None]
  - CHRONIC OBSTRUCTIVE PULMONARY DISEASE [None]
  - DYSPNOEA [None]
  - HEART RATE INCREASED [None]
  - HYPOXIA [None]
  - LUNG INFECTION [None]
  - LUNG INFILTRATION [None]
  - LYMPHADENOPATHY [None]
  - METASTASES TO LUNG [None]
  - OXYGEN SATURATION DECREASED [None]
  - PERICARDIAL EFFUSION [None]
  - PULMONARY MASS [None]
  - RESPIRATORY RATE INCREASED [None]
  - SPEECH DISORDER [None]
  - TACHYPNOEA [None]
  - TREATMENT NONCOMPLIANCE [None]
